FAERS Safety Report 11785331 (Version 1)
Quarter: 2015Q4

REPORT INFORMATION
  Report Type: Spontaneous
  Country: IT (occurrence: IT)
  Receive Date: 20151130
  Receipt Date: 20151130
  Transmission Date: 20160305
  Serious: Yes (Other)
  Sender: FDA-Public Use
  Company Number: PHHY2015IT155119

PATIENT
  Age: 78 Year
  Sex: Male

DRUGS (1)
  1. DEFERASIROX [Suspect]
     Active Substance: DEFERASIROX
     Indication: LIVER IRON CONCENTRATION INCREASED
     Dosage: 15 MG/KG, QD
     Route: 065

REACTIONS (2)
  - Headache [Unknown]
  - Skin reaction [Unknown]
